FAERS Safety Report 25727436 (Version 1)
Quarter: 2025Q3

REPORT INFORMATION
  Report Type: Spontaneous
  Country: US (occurrence: US)
  Receive Date: 20250826
  Receipt Date: 20250826
  Transmission Date: 20251021
  Serious: Yes (Other)
  Sender: MERCK SHARP & DOHME LLC
  Company Number: US-009507513-2320214

PATIENT
  Sex: Male

DRUGS (6)
  1. KEYTRUDA [Suspect]
     Active Substance: PEMBROLIZUMAB
     Indication: Malignant melanoma
     Route: 042
     Dates: start: 20250619
  2. KEYTRUDA [Suspect]
     Active Substance: PEMBROLIZUMAB
     Indication: Malignant melanoma
     Route: 042
     Dates: start: 20250529
  3. ROSUVASTATIN [Concomitant]
     Active Substance: ROSUVASTATIN
  4. LOSARTAN [Concomitant]
     Active Substance: LOSARTAN
  5. LEVOTHYROXINE [Concomitant]
     Active Substance: LEVOTHYROXINE
  6. TYLENOL [Concomitant]
     Active Substance: ACETAMINOPHEN

REACTIONS (9)
  - Hypothyroidism [Recovering/Resolving]
  - Decreased appetite [Recovering/Resolving]
  - Visual impairment [Recovering/Resolving]
  - Anaemia [Recovering/Resolving]
  - Swelling [Recovering/Resolving]
  - Arthralgia [Recovering/Resolving]
  - Motor dysfunction [Recovering/Resolving]
  - Discomfort [Recovering/Resolving]
  - Oedema peripheral [Recovering/Resolving]
